FAERS Safety Report 6057301-3 (Version None)
Quarter: 2009Q1

REPORT INFORMATION
  Report Type: 
  Country: None (occurrence: None)
  Receive Date: 20090129
  Receipt Date: 20080818
  Transmission Date: 20090719
  Serious: No
  Sender: FDA-Public Use
  Company Number: A0743078A

PATIENT
  Age: 61 Year
  Sex: Female

DRUGS (7)
  1. WELLBUTRIN [Suspect]
     Indication: DEPRESSION
     Dosage: 75MG PER DAY
     Route: 048
     Dates: start: 20080711
  2. LEVOXYL [Concomitant]
  3. PROMETRIUM [Concomitant]
  4. LEXAPRO [Concomitant]
  5. AMITRIPTYLINE HCL [Concomitant]
  6. ESTROGENIC SUBSTANCE [Concomitant]
  7. ROBINUL FORTE [Concomitant]

REACTIONS (1)
  - HOT FLUSH [None]
